FAERS Safety Report 4733230-X (Version None)
Quarter: 2005Q3

REPORT INFORMATION
  Report Type: 
  Country: None (occurrence: None)
  Receive Date: 20050803
  Receipt Date: 20050722
  Transmission Date: 20060218
  Serious: Yes (Hospitalization)
  Sender: FDA-Public Use
  Company Number: GR-ROCHE-411788

PATIENT
  Age: 5 Year
  Sex: Male
  Weight: 20 kg

DRUGS (1)
  1. ROFERON-A [Suspect]
     Dosage: STRENGTH REPORTED AS 3 MIU/0.5 ML.
     Route: 058
     Dates: start: 20050721, end: 20050721

REACTIONS (7)
  - FAECAL INCONTINENCE [None]
  - GRAND MAL CONVULSION [None]
  - HYPERPYREXIA [None]
  - ILLUSION [None]
  - INCONTINENCE [None]
  - URINARY INCONTINENCE [None]
  - VOMITING [None]
